FAERS Safety Report 7357249-8 (Version None)
Quarter: 2011Q1

REPORT INFORMATION
  Report Type: 
  Country: None (occurrence: None)
  Receive Date: 20110311
  Receipt Date: 20110311
  Transmission Date: 20110831
  Serious: Yes (Other)
  Sender: FDA-Public Use
  Company Number: None

PATIENT
  Sex: Male
  Weight: 57.1 kg

DRUGS (1)
  1. FIRMAGON [Suspect]
     Indication: PROSTATE CANCER METASTATIC
     Dosage: 120 MG X2 INJ TODAY SUBCUTANEOUS
     Route: 058
     Dates: start: 20110302

REACTIONS (3)
  - ERYTHEMA [None]
  - PAIN [None]
  - SWELLING [None]
